FAERS Safety Report 9445200 (Version 4)
Quarter: 2014Q1

REPORT INFORMATION
  Report Type: Report from Study
  Country: DE (occurrence: DE)
  Receive Date: 20130807
  Receipt Date: 20140306
  Transmission Date: 20141002
  Serious: Yes (Life-Threatening, Hospitalization)
  Sender: FDA-Public Use
  Company Number: DE-GLAXOSMITHKLINE-B0891633C

PATIENT
  Age: 60 Year
  Sex: Female
  Weight: 79 kg

DRUGS (10)
  1. PAZOPANIB [Suspect]
     Indication: OVARIAN CANCER
     Dosage: 600MG PER DAY
     Route: 048
     Dates: start: 20130429, end: 20130802
  2. TOPOTECAN [Suspect]
     Indication: OVARIAN CANCER
     Dosage: 4MG WEEKLY
     Route: 042
     Dates: start: 20130429, end: 20130722
  3. CELEBREX [Concomitant]
     Indication: ARTHRITIS
     Dosage: 200MG PER DAY
     Route: 048
     Dates: start: 20120801
  4. TOREM [Concomitant]
     Indication: OEDEMA
     Dosage: 10MG PER DAY
     Route: 048
     Dates: start: 20120801
  5. VITAMIN B6 [Concomitant]
     Indication: POLYNEUROPATHY
     Dosage: 100MG PER DAY
     Route: 023
     Dates: start: 20120801
  6. GABAPENTIN [Concomitant]
     Indication: POLYNEUROPATHY
     Dosage: 400MG PER DAY
     Route: 048
     Dates: start: 20120801
  7. NOVAMINSULFON [Concomitant]
     Indication: TUMOUR PAIN
     Dosage: 40DROP PER DAY
     Route: 048
     Dates: start: 20130521
  8. TETRAZEPAM [Concomitant]
     Indication: TUMOUR PAIN
     Dosage: 50MG PER DAY
     Route: 048
     Dates: start: 20130618
  9. DUROGESIC [Concomitant]
     Indication: TUMOUR PAIN
     Dosage: 25UG PER DAY
     Dates: start: 20130618
  10. BISOPROLOL [Concomitant]
     Indication: ANGINA PECTORIS
     Dosage: 2.5MG PER DAY
     Route: 048
     Dates: start: 20120801

REACTIONS (1)
  - Pulmonary embolism [Recovered/Resolved]
